FAERS Safety Report 18846716 (Version 6)
Quarter: 2021Q2

REPORT INFORMATION
  Report Type: Report from Study
  Country: BR (occurrence: BR)
  Receive Date: 20210204
  Receipt Date: 20210510
  Transmission Date: 20210717
  Serious: Yes (Hospitalization, Other)
  Sender: FDA-Public Use
  Company Number: BR-TAKEDA-2021TUS006052

PATIENT
  Age: 15 Year
  Sex: Female
  Weight: 48 kg

DRUGS (20)
  1. HUMAN IMMUNOGLOBULIN; HYALURONIDASE [Suspect]
     Active Substance: HUMAN IMMUNOGLOBULIN G\HYALURONIDASE RECOMBINANT HUMAN
     Indication: GRANULOMATOSIS WITH POLYANGIITIS
     Dosage: 75 GRAM, EVERY 28 DAYS
     Route: 058
     Dates: start: 20201222
  2. HUMAN IMMUNOGLOBULIN; HYALURONIDASE [Suspect]
     Active Substance: HUMAN IMMUNOGLOBULIN G\HYALURONIDASE RECOMBINANT HUMAN
     Dosage: UNK EVERY 21 DAYS
     Route: 058
     Dates: end: 202102
  3. BUSONID [Concomitant]
     Active Substance: BUDESONIDE
     Indication: PRODUCT USED FOR UNKNOWN INDICATION
  4. CYCLOSPORINE. [Concomitant]
     Active Substance: CYCLOSPORINE
     Indication: PRODUCT USED FOR UNKNOWN INDICATION
     Dosage: 50 MILLIGRAM/100 MILLIGRAM, QD
     Route: 065
  5. CYCLOSPORINE. [Concomitant]
     Active Substance: CYCLOSPORINE
     Dosage: 50 MILLIGRAM, QD
     Route: 065
  6. HUMAN IMMUNOGLOBULIN; HYALURONIDASE [Suspect]
     Active Substance: HUMAN IMMUNOGLOBULIN G\HYALURONIDASE RECOMBINANT HUMAN
     Dosage: 75 GRAM (30 G, 2 VIALS)
     Route: 065
  7. METHOTREXATE. [Concomitant]
     Active Substance: METHOTREXATE
     Indication: PNEUMONITIS
  8. KIOVIG [Suspect]
     Active Substance: HUMAN IMMUNOGLOBULIN G
     Indication: PRIMARY IMMUNODEFICIENCY SYNDROME
     Dosage: 75 GRAM
     Route: 042
     Dates: start: 20200915
  9. VONAU [Concomitant]
     Active Substance: ONDANSETRON HYDROCHLORIDE
     Indication: PRODUCT USED FOR UNKNOWN INDICATION
     Dosage: 8 MILLIGRAM
     Route: 065
  10. CYCLOPHOSPHAMIDE. [Concomitant]
     Active Substance: CYCLOPHOSPHAMIDE
  11. HUMAN IMMUNOGLOBULIN; HYALURONIDASE [Suspect]
     Active Substance: HUMAN IMMUNOGLOBULIN G\HYALURONIDASE RECOMBINANT HUMAN
     Dosage: 75 GRAM (10 G, 1 VIAL)
     Route: 065
  12. BACTRIM [Concomitant]
     Active Substance: SULFAMETHOXAZOLE\TRIMETHOPRIM
     Indication: PRODUCT USED FOR UNKNOWN INDICATION
     Dosage: 400 MILLIGRAM/80 MILLIGRAM, QD
     Route: 065
  13. PREDNISONE. [Concomitant]
     Active Substance: PREDNISONE
     Indication: PRODUCT USED FOR UNKNOWN INDICATION
     Dosage: 25 MILLIGRAM, BID
     Route: 065
  14. AZATHIOPRINE. [Concomitant]
     Active Substance: AZATHIOPRINE
     Indication: HEPATITIS
  15. KIOVIG [Suspect]
     Active Substance: HUMAN IMMUNOGLOBULIN G
     Dosage: 75 GRAM
     Route: 058
     Dates: start: 20200915
  16. DEXILANT [Concomitant]
     Active Substance: DEXLANSOPRAZOLE
     Indication: PRODUCT USED FOR UNKNOWN INDICATION
     Dosage: 30 MILLIGRAM, QD
     Route: 065
  17. CALCIUM + VITAMIN D [CALCIUM;COLECALCIFEROL] [Concomitant]
     Active Substance: CALCIUM\CHOLECALCIFEROL
     Indication: PRODUCT USED FOR UNKNOWN INDICATION
     Dosage: UNK UNK, BID
     Route: 065
  18. ALENIA [BUDESONIDE;FORMOTEROL FUMARATE] [Concomitant]
     Active Substance: BUDESONIDE\FORMOTEROL FUMARATE
     Indication: PRODUCT USED FOR UNKNOWN INDICATION
     Dosage: 12MCG/400MCG, BID
     Route: 065
  19. HUMAN IMMUNOGLOBULIN; HYALURONIDASE [Suspect]
     Active Substance: HUMAN IMMUNOGLOBULIN G\HYALURONIDASE RECOMBINANT HUMAN
     Indication: PRIMARY IMMUNODEFICIENCY SYNDROME
     Dosage: UNK
     Route: 065
  20. HUMAN IMMUNOGLOBULIN; HYALURONIDASE [Suspect]
     Active Substance: HUMAN IMMUNOGLOBULIN G\HYALURONIDASE RECOMBINANT HUMAN
     Dosage: 75 GRAM ( (5 G, 1 VIAL))
     Route: 065

REACTIONS (14)
  - Bone marrow disorder [Not Recovered/Not Resolved]
  - Condition aggravated [Unknown]
  - Infection [Unknown]
  - Lymphocyte morphology abnormal [Not Recovered/Not Resolved]
  - Influenza [Recovered/Resolved]
  - Product dose omission issue [Recovered/Resolved]
  - Chemotherapy [Unknown]
  - Pain [Recovered/Resolved]
  - Migraine [Not Recovered/Not Resolved]
  - Nausea [Unknown]
  - Infusion related reaction [Unknown]
  - Meningitis [Recovered/Resolved]
  - Meningitis aseptic [Recovered/Resolved]
  - Off label use [Unknown]

NARRATIVE: CASE EVENT DATE: 202012
